FAERS Safety Report 8012323-8 (Version None)
Quarter: 2011Q4

REPORT INFORMATION
  Report Type: 
  Country: None (occurrence: None)
  Receive Date: 20111228
  Receipt Date: 20111216
  Transmission Date: 20120403
  Serious: Yes (Hospitalization, Other)
  Sender: FDA-Public Use
  Company Number: FR-ROCHE-1025740

PATIENT
  Sex: Female
  Weight: 62.4 kg

DRUGS (4)
  1. COPEGUS [Suspect]
     Indication: HEPATITIS C
     Route: 048
     Dates: start: 20110202, end: 20110304
  2. PEGINTERFERON ALFA-2A [Suspect]
     Indication: HEPATITIS C
     Route: 058
     Dates: start: 20110202, end: 20110304
  3. NEXIUM [Concomitant]
     Indication: DYSPEPSIA
     Route: 048
  4. PANTOPRAZOLE [Concomitant]
     Indication: DYSPEPSIA
     Route: 048
     Dates: start: 20110215

REACTIONS (8)
  - NAUSEA [None]
  - DYSPNOEA [None]
  - PYREXIA [None]
  - ANAEMIA [None]
  - ANGIOEDEMA [None]
  - PHOTOSENSITIVITY REACTION [None]
  - DIARRHOEA [None]
  - DEHYDRATION [None]
